FAERS Safety Report 8633512 (Version 6)
Quarter: 2012Q4

REPORT INFORMATION
  Report Type: Report from Study
  Country: US (occurrence: US)
  Receive Date: 20120625
  Receipt Date: 20121023
  Transmission Date: 20130627
  Serious: Yes (Hospitalization)
  Sender: FDA-Public Use
  Company Number: US-TEVA-344609USA

PATIENT
  Age: 68 Year
  Sex: Female
  Weight: 105 kg

DRUGS (21)
  1. TREANDA [Suspect]
     Indication: NON-HODGKIN^S LYMPHOMA
     Dosage: Day 1 and 2 of each 28 day cycle
     Route: 042
     Dates: start: 20120327, end: 20120328
  2. RITUXIMAB [Suspect]
     Indication: NON-HODGKIN^S LYMPHOMA
     Dosage: Day 1 of each 28 day cycle,
     Route: 042
     Dates: start: 20120327, end: 20120327
  3. POTASSIUM CHLORIDE [Concomitant]
     Dates: start: 2009
  4. COLECALCIFEROL [Concomitant]
     Dates: start: 2009
  5. GENISTEIN [Concomitant]
     Dates: start: 2009
  6. ZINC [Concomitant]
     Dates: start: 2009
  7. PROCHLORPERAZINE MALEATE [Concomitant]
     Dates: start: 2009
  8. ACICLOVIR [Concomitant]
     Dates: start: 200912
  9. SERTRALINE [Concomitant]
     Dates: start: 200909
  10. ONDANSETRON [Concomitant]
     Dates: start: 2009
  11. TYLOX [Concomitant]
     Dates: start: 20111018
  12. LACTOBACILLUS ACIDOPHILUS [Concomitant]
     Dates: start: 201001
  13. OMEPRAZOLE [Concomitant]
     Dates: start: 20090930
  14. ALLOPURINOL [Concomitant]
     Dates: start: 20120325
  15. METOPROLOL SUCCINATE [Concomitant]
     Dates: start: 20120326
  16. LORAZEPAM [Concomitant]
     Dates: start: 20091119
  17. FUROSEMIDE [Concomitant]
     Dates: start: 200901
  18. GENESA [Concomitant]
     Dates: start: 200911
  19. IBUPROFEN [Concomitant]
     Dates: start: 199201
  20. LOPERAMIDE [Concomitant]
     Dates: start: 200910
  21. LEVOTHYROXINE [Concomitant]
     Dates: start: 2002

REACTIONS (2)
  - Pancytopenia [Recovering/Resolving]
  - Hypotension [Recovered/Resolved]
